FAERS Safety Report 4398654-1 (Version None)
Quarter: 2004Q3

REPORT INFORMATION
  Report Type: 
  Country: None (occurrence: None)
  Receive Date: 20040712
  Receipt Date: 20040702
  Transmission Date: 20050211
  Serious: Yes (Life-Threatening, Hospitalization)
  Sender: FDA-Public Use
  Company Number: 2004SE03748

PATIENT
  Age: 56 Year
  Sex: Male

DRUGS (5)
  1. BLOPRESS [Suspect]
     Indication: HYPERTENSION
     Dosage: 4 MG DAILY PO
     Route: 048
     Dates: start: 20040408, end: 20040615
  2. WARFARIN SODIUM [Suspect]
     Dosage: 3 MG DAILY PO
     Route: 048
     Dates: start: 20040408
  3. GASTER [Suspect]
     Dosage: 20 MG DAILY PO
     Route: 048
     Dates: start: 20040408
  4. RYTHMODAN R [Suspect]
     Dosage: 3 DF DAILY PO
     Route: 048
     Dates: start: 20040408
  5. PERSANTIN [Suspect]
     Dates: start: 20040408

REACTIONS (5)
  - ANOREXIA [None]
  - EPISTAXIS [None]
  - GENERAL PHYSICAL HEALTH DETERIORATION [None]
  - HEPATITIS FULMINANT [None]
  - MALAISE [None]
